FAERS Safety Report 25842606 (Version 1)
Quarter: 2025Q3

REPORT INFORMATION
  Report Type: Report from Study
  Country: US (occurrence: US)
  Receive Date: 20250924
  Receipt Date: 20250924
  Transmission Date: 20251021
  Serious: Yes (Hospitalization)
  Sender: ABBVIE
  Company Number: US-ABBVIE-6472070

PATIENT
  Age: 62 Year
  Sex: Male

DRUGS (1)
  1. RINVOQ [Suspect]
     Active Substance: UPADACITINIB
     Indication: Colitis ulcerative
     Route: 048
     Dates: start: 20250506

REACTIONS (4)
  - Arthropod bite [Recovered/Resolved]
  - Rash macular [Not Recovered/Not Resolved]
  - Seborrhoea [Unknown]
  - Limb injury [Unknown]

NARRATIVE: CASE EVENT DATE: 20250101
